FAERS Safety Report 16054030 (Version 2)
Quarter: 2025Q2

REPORT INFORMATION
  Report Type: Spontaneous
  Country: US (occurrence: US)
  Receive Date: 20190308
  Receipt Date: 20250613
  Transmission Date: 20250717
  Serious: Yes (Life-Threatening, Hospitalization)
  Sender: MYLAN
  Company Number: US-MYLANLABS-2019M1021353

PATIENT
  Age: 71 Year
  Sex: Male

DRUGS (32)
  1. TRANEXAMIC ACID [Suspect]
     Active Substance: TRANEXAMIC ACID
     Indication: Shoulder arthroplasty
  2. TRANEXAMIC ACID [Suspect]
     Active Substance: TRANEXAMIC ACID
     Route: 042
  3. TRANEXAMIC ACID [Suspect]
     Active Substance: TRANEXAMIC ACID
     Route: 042
  4. TRANEXAMIC ACID [Suspect]
     Active Substance: TRANEXAMIC ACID
  5. ROPIVACAINE [Concomitant]
     Active Substance: ROPIVACAINE
     Indication: Analgesic therapy
  6. ROPIVACAINE [Concomitant]
     Active Substance: ROPIVACAINE
     Indication: Postoperative analgesia
  7. ROPIVACAINE [Concomitant]
     Active Substance: ROPIVACAINE
     Route: 053
  8. ROPIVACAINE [Concomitant]
     Active Substance: ROPIVACAINE
     Route: 053
  9. ROPIVACAINE [Concomitant]
     Active Substance: ROPIVACAINE
     Dosage: 6 MILLILITER, QH (POSTOPERATIVE INFUSION)
  10. ROPIVACAINE [Concomitant]
     Active Substance: ROPIVACAINE
     Dosage: 6 MILLILITER, QH (POSTOPERATIVE INFUSION)
  11. ROPIVACAINE [Concomitant]
     Active Substance: ROPIVACAINE
     Dosage: 6 MILLILITER, QH (POSTOPERATIVE INFUSION)
     Route: 053
  12. ROPIVACAINE [Concomitant]
     Active Substance: ROPIVACAINE
     Dosage: 6 MILLILITER, QH (POSTOPERATIVE INFUSION)
     Route: 053
  13. PROPOFOL [Concomitant]
     Active Substance: PROPOFOL
     Indication: Induction of anaesthesia
  14. PROPOFOL [Concomitant]
     Active Substance: PROPOFOL
     Route: 007
  15. PROPOFOL [Concomitant]
     Active Substance: PROPOFOL
     Route: 007
  16. PROPOFOL [Concomitant]
     Active Substance: PROPOFOL
  17. FENTANYL [Concomitant]
     Active Substance: FENTANYL
     Indication: Induction of anaesthesia
  18. FENTANYL [Concomitant]
     Active Substance: FENTANYL
     Route: 007
  19. FENTANYL [Concomitant]
     Active Substance: FENTANYL
     Route: 007
  20. FENTANYL [Concomitant]
     Active Substance: FENTANYL
  21. ROCURONIUM [Concomitant]
     Active Substance: ROCURONIUM BROMIDE
     Indication: Induction of anaesthesia
  22. ROCURONIUM [Concomitant]
     Active Substance: ROCURONIUM BROMIDE
     Route: 007
  23. ROCURONIUM [Concomitant]
     Active Substance: ROCURONIUM BROMIDE
     Route: 007
  24. ROCURONIUM [Concomitant]
     Active Substance: ROCURONIUM BROMIDE
  25. SEVOFLURANE [Concomitant]
     Active Substance: SEVOFLURANE
     Indication: Maintenance of anaesthesia
  26. SEVOFLURANE [Concomitant]
     Active Substance: SEVOFLURANE
     Route: 007
  27. SEVOFLURANE [Concomitant]
     Active Substance: SEVOFLURANE
     Route: 007
  28. SEVOFLURANE [Concomitant]
     Active Substance: SEVOFLURANE
  29. PHENYLEPHRINE [Concomitant]
     Active Substance: PHENYLEPHRINE
     Indication: Product used for unknown indication
  30. PHENYLEPHRINE [Concomitant]
     Active Substance: PHENYLEPHRINE
     Indication: Prophylaxis
     Route: 065
  31. PHENYLEPHRINE [Concomitant]
     Active Substance: PHENYLEPHRINE
     Route: 065
  32. PHENYLEPHRINE [Concomitant]
     Active Substance: PHENYLEPHRINE

REACTIONS (4)
  - Coronary artery thrombosis [Recovering/Resolving]
  - Vascular stent thrombosis [Recovering/Resolving]
  - Cardiogenic shock [Recovering/Resolving]
  - Myocardial infarction [Recovering/Resolving]
